FAERS Safety Report 4693877-6 (Version None)
Quarter: 2005Q2

REPORT INFORMATION
  Report Type: 
  Country: None (occurrence: None)
  Receive Date: 20050616
  Receipt Date: 20050608
  Transmission Date: 20051028
  Serious: Yes (Life-Threatening, Other)
  Sender: FDA-Public Use
  Company Number: 2005051607

PATIENT
  Age: 65 Year
  Sex: Male

DRUGS (2)
  1. SOLU-CORTEF [Suspect]
     Indication: ILL-DEFINED DISORDER
     Dosage: (25 MG), INTRAVENOUS
     Route: 042
     Dates: start: 20050316
  2. PREDNISONE [Suspect]
     Indication: ILL-DEFINED DISORDER
     Dosage: ORAL
     Route: 048

REACTIONS (9)
  - BRADYCARDIA [None]
  - BRONCHOSPASM [None]
  - DRUG HYPERSENSITIVITY [None]
  - DYSPNOEA [None]
  - FEELING ABNORMAL [None]
  - HYPERHIDROSIS [None]
  - HYPOTENSION [None]
  - PALLOR [None]
  - UNEVALUABLE EVENT [None]
